FAERS Safety Report 5708555-1 (Version None)
Quarter: 2008Q2

REPORT INFORMATION
  Report Type: 
  Country: None (occurrence: None)
  Receive Date: 20080417
  Receipt Date: 20080407
  Transmission Date: 20081010
  Serious: Yes (Other)
  Sender: FDA-Public Use
  Company Number: PHHY2008BR03839

PATIENT
  Age: 76 Year
  Sex: Female
  Weight: 43 kg

DRUGS (8)
  1. FORADIL [Suspect]
     Indication: ASTHMA
  2. FORASEQ [Suspect]
     Indication: ASTHMA
  3. BAMIFIX [Concomitant]
     Indication: ASTHMA
     Dosage: 300 MG, BID
     Route: 048
  4. BEROTEC [Concomitant]
     Indication: ASTHMA
     Dosage: 3 DROPS
  5. ATROVENT [Concomitant]
     Indication: ASTHMA
     Dosage: 6 DROPS
  6. AAS [Concomitant]
     Indication: COAGULOPATHY
  7. GINKGO BILOBA [Concomitant]
  8. SODIUM CHLORIDE 0.9% [Concomitant]

REACTIONS (6)
  - ASTHMA [None]
  - DYSPNOEA [None]
  - HYPERSENSITIVITY [None]
  - SURGERY [None]
  - UPPER LIMB FRACTURE [None]
  - WEIGHT DECREASED [None]
